FAERS Safety Report 20780597 (Version 1)
Quarter: 2022Q2

REPORT INFORMATION
  Report Type: Spontaneous
  Country: FR (occurrence: FR)
  Receive Date: 20220504
  Receipt Date: 20220504
  Transmission Date: 20220721
  Serious: Yes (Hospitalization, Other)
  Sender: FDA-Public Use
  Company Number: FR-AFSSAPS-DJ20221058

PATIENT
  Age: 63 Year
  Sex: Female
  Weight: 82 kg

DRUGS (4)
  1. CARBOPLATIN [Suspect]
     Active Substance: CARBOPLATIN
     Indication: Endometrial cancer metastatic
     Dosage: 840 MILLIGRAM, 1 CYCLICAL (6 CYCLES)
     Route: 041
     Dates: start: 20201028
  2. PACLITAXEL [Suspect]
     Active Substance: PACLITAXEL
     Indication: Endometrial cancer metastatic
     Dosage: 175 MILLIGRAM/SQ. METER, CYCLICAL (6 CYCLES)
     Route: 041
     Dates: start: 20201028
  3. DOXORUBICIN HYDROCHLORIDE [Suspect]
     Active Substance: DOXORUBICIN HYDROCHLORIDE
     Indication: Endometrial cancer metastatic
     Dosage: 50 MILLIGRAM/SQ. METER,1 CYCLICAL (8 CYCLES)
     Route: 041
     Dates: start: 20210506
  4. ZIRABEV [Concomitant]
     Active Substance: BEVACIZUMAB-BVZR
     Indication: Endometrial cancer metastatic
     Dosage: 15 MILLIGRAM/KILOGRAM, 1 CYCLICAL (2 CYCLES)
     Route: 041
     Dates: start: 20210318

REACTIONS (1)
  - Myelodysplastic syndrome [Not Recovered/Not Resolved]

NARRATIVE: CASE EVENT DATE: 20220202
